FAERS Safety Report 16474129 (Version 1)
Quarter: 2019Q3

REPORT INFORMATION
  Report Type: Spontaneous
  Country: US (occurrence: US)
  Receive Date: 20190624
  Receipt Date: 20190624
  Transmission Date: 20191004
  Serious: Yes (Hospitalization)
  Sender: FDA-Public Use
  Company Number: None

PATIENT
  Age: 26 Year
  Sex: Male

DRUGS (8)
  1. VITAMIN D 50,0000 UNIT [Concomitant]
  2. BENZTROPINE. [Concomitant]
     Active Substance: BENZTROPINE
  3. LITHIUM CARBONATE. [Concomitant]
     Active Substance: LITHIUM CARBONATE
  4. CLONAZEPAM. [Concomitant]
     Active Substance: CLONAZEPAM
  5. TOPIRAMATE. [Concomitant]
     Active Substance: TOPIRAMATE
  6. ZIPRASIDONE. [Concomitant]
     Active Substance: ZIPRASIDONE
  7. STELARA [Suspect]
     Active Substance: USTEKINUMAB
     Indication: CROHN^S DISEASE
     Dosage: ?          OTHER FREQUENCY:EVERY 8 WEEKS;?
     Route: 058
     Dates: start: 20181119
  8. PROPRANOLOL [Concomitant]
     Active Substance: PROPRANOLOL HYDROCHLORIDE

REACTIONS (2)
  - Mental disorder [None]
  - Memory impairment [None]

NARRATIVE: CASE EVENT DATE: 20190621
